FAERS Safety Report 7791527-3 (Version None)
Quarter: 2011Q4

REPORT INFORMATION
  Report Type: 
  Country: None (occurrence: None)
  Receive Date: 20111003
  Receipt Date: 20110928
  Transmission Date: 20120403
  Serious: Yes (Hospitalization, Other)
  Sender: FDA-Public Use
  Company Number: US-JNJFOC-20110609291

PATIENT
  Sex: Male

DRUGS (9)
  1. FEXOFENADINE [Concomitant]
     Route: 065
  2. NAPROXEN [Concomitant]
     Route: 065
  3. ZOCOR [Concomitant]
     Route: 065
  4. LEVAQUIN [Suspect]
     Indication: PNEUMONIA
     Route: 042
     Dates: start: 20100117, end: 20100120
  5. ASPIRIN [Concomitant]
     Route: 065
  6. POLYETHYLENE GLYCOL [Concomitant]
     Route: 065
  7. HYDROCODONE BITARTRATE AND ACETAMINOPHEN [Concomitant]
     Route: 065
  8. FLUTICASONE PROPIONATE [Concomitant]
     Route: 065
  9. HYDROCHLOROTHIAZIDE W/MOEXIPRIL HYDROCHLORIDE [Concomitant]
     Route: 065

REACTIONS (2)
  - PSYCHOTIC DISORDER [None]
  - INJURY [None]
